FAERS Safety Report 8804984 (Version 1)
Quarter: 2012Q4

REPORT INFORMATION
  Report Type: 
  Country: AR (occurrence: AR)
  Receive Date: 20120924
  Receipt Date: 20120924
  Transmission Date: 20130627
  Serious: Yes (Other)
  Sender: FDA-Public Use
  Company Number: AR-ROCHE-1128537

PATIENT
  Sex: Female

DRUGS (1)
  1. RANIBIZUMAB [Suspect]
     Indication: MACULOPATHY
     Route: 050
     Dates: start: 20120719, end: 201207

REACTIONS (2)
  - Ulcerative keratitis [Recovered/Resolved]
  - Drug ineffective [Unknown]
